FAERS Safety Report 23547398 (Version 1)
Quarter: 2024Q1

REPORT INFORMATION
  Report Type: Spontaneous
  Country: US (occurrence: US)
  Receive Date: 20240221
  Receipt Date: 20240221
  Transmission Date: 20240409
  Serious: No
  Sender: FDA-Public Use
  Company Number: US-GLAXOSMITHKLINE-US2024AMR020371

PATIENT
  Age: 63 Year
  Sex: Male

DRUGS (3)
  1. ZEJULA [Suspect]
     Active Substance: NIRAPARIB
     Indication: Malignant melanoma
     Dosage: 100 MG, QD
     Route: 048
     Dates: start: 20240122, end: 20240214
  2. ZEJULA [Suspect]
     Active Substance: NIRAPARIB
     Indication: Metastases to central nervous system
  3. ZEJULA [Suspect]
     Active Substance: NIRAPARIB
     Indication: Metastases to adrenals

REACTIONS (4)
  - Fatigue [Not Recovered/Not Resolved]
  - Myalgia [Not Recovered/Not Resolved]
  - Back pain [Not Recovered/Not Resolved]
  - Product use in unapproved indication [Unknown]

NARRATIVE: CASE EVENT DATE: 20240122
